FAERS Safety Report 6568132-X (Version None)
Quarter: 2010Q1

REPORT INFORMATION
  Report Type: 
  Country: None (occurrence: None)
  Receive Date: 20100127
  Receipt Date: 20100112
  Transmission Date: 20100710
  Serious: Yes (Death)
  Sender: FDA-Public Use
  Company Number: KV201000023

PATIENT
  Age: 34 Year
  Sex: Female
  Weight: 83.9 kg

DRUGS (12)
  1. MORPHINE SULFATE [Suspect]
     Indication: BACK PAIN
     Dosage: 30 MG, BID, ORAL
     Route: 048
     Dates: start: 20080707, end: 20080826
  2. MORPHINE SULFATE [Suspect]
     Indication: BACK PAIN
     Dosage: 30 MG, BID, ORAL
     Route: 048
     Dates: start: 20080820, end: 20080826
  3. ATIVAN [Concomitant]
  4. ZOLOFT [Concomitant]
  5. ZANAFLEX [Concomitant]
  6. AMBIEN [Concomitant]
  7. CITRUCEL (METHYLCELLULOSE) [Concomitant]
  8. MULTIVITAMIN /00831701/ (VITAMINS NOS) [Concomitant]
  9. PROTONIX [Concomitant]
  10. CYANOCOBALAMIN [Concomitant]
  11. FERROUS SULFATE TAB [Concomitant]
  12. PERCOCET [Concomitant]

REACTIONS (5)
  - DIZZINESS [None]
  - FATIGUE [None]
  - SUTURE RELATED COMPLICATION [None]
  - VOMITING [None]
  - WEIGHT DECREASED [None]
